FAERS Safety Report 16297268 (Version 2)
Quarter: 2019Q2

REPORT INFORMATION
  Report Type: Report from Study
  Country: FR (occurrence: FR)
  Receive Date: 20190510
  Receipt Date: 20190522
  Transmission Date: 20190711
  Serious: Yes (Hospitalization)
  Sender: FDA-Public Use
  Company Number: FR-ROCHE-2311034

PATIENT
  Age: 60 Year
  Sex: Male

DRUGS (8)
  1. BACTRIM [Concomitant]
     Active Substance: SULFAMETHOXAZOLE\TRIMETHOPRIM
  2. FAZOL [ISOCONAZOLE NITRATE] [Concomitant]
  3. ELISOR [Concomitant]
     Active Substance: PRAVASTATIN SODIUM
  4. ESOMEPRAZOLE. [Concomitant]
     Active Substance: ESOMEPRAZOLE MAGNESIUM
  5. ATEZOLIZUMAB. [Suspect]
     Active Substance: ATEZOLIZUMAB
     Indication: METASTASES TO CENTRAL NERVOUS SYSTEM
     Dosage: 12:47
     Route: 042
     Dates: start: 20190411
  6. COBIMETINIB. [Suspect]
     Active Substance: COBIMETINIB
     Indication: METASTASES TO CENTRAL NERVOUS SYSTEM
     Dosage: THREE TABLETS OF 20 MG EACH (AS PER PROTOCOL)?DATE OF MOST RECENT DOSE OF COBIMETINIB (60MG) PRIOR T
     Route: 048
     Dates: start: 20190411
  7. TRIFLUCAN [Concomitant]
     Active Substance: FLUCONAZOLE
  8. AVLOCARDYL [PROPRANOLOL] [Concomitant]
     Active Substance: PROPRANOLOL HYDROCHLORIDE

REACTIONS (2)
  - Thermal burn [Recovered/Resolved]
  - Rash [Recovered/Resolved]

NARRATIVE: CASE EVENT DATE: 20190424
